FAERS Safety Report 6141247-6 (Version None)
Quarter: 2009Q2

REPORT INFORMATION
  Report Type: 
  Country: None (occurrence: None)
  Receive Date: 20090402
  Receipt Date: 20090324
  Transmission Date: 20091009
  Serious: Yes (Other)
  Sender: FDA-Public Use
  Company Number: US-WATSON-2009-01967

PATIENT
  Sex: Female
  Weight: 53.061 kg

DRUGS (2)
  1. FERRLECIT [Suspect]
     Indication: IRON DEFICIENCY ANAEMIA
     Dosage: 125 MG IV IN 30-45 MINUTES (^4TH OR 5TH TREATMENT^)
     Route: 042
     Dates: start: 20090318, end: 20090318
  2. FERRLECIT [Suspect]
     Dosage: 125 MG IV IN 30-45 MINUTES (^4TH OR 5TH TREATMENT^)
     Route: 042
     Dates: start: 20090311, end: 20090311

REACTIONS (6)
  - ABASIA [None]
  - ANAPHYLACTIC REACTION [None]
  - ARTHRALGIA [None]
  - DYSARTHRIA [None]
  - DYSPNOEA [None]
  - PRURITUS [None]
